FAERS Safety Report 4553859-1 (Version None)
Quarter: 2005Q1

REPORT INFORMATION
  Report Type: 
  Country: None (occurrence: None)
  Receive Date: 20050112
  Receipt Date: 20050112
  Transmission Date: 20050727
  Serious: Yes (Death)
  Sender: FDA-Public Use
  Company Number: None

PATIENT
  Age: 50 Year
  Sex: Male

DRUGS (1)
  1. INTERFERON ALFA-2B [Suspect]

REACTIONS (5)
  - ASTHENIA [None]
  - CONTUSION [None]
  - DEPRESSION [None]
  - EPISTAXIS [None]
  - MEDICATION ERROR [None]
